FAERS Safety Report 5250823-4 (Version None)
Quarter: 2007Q1

REPORT INFORMATION
  Report Type: 
  Country: None (occurrence: None)
  Receive Date: 20070228
  Receipt Date: 20060710
  Transmission Date: 20070707
  Serious: Yes (Hospitalization)
  Sender: FDA-Public Use
  Company Number: 8011410

PATIENT
  Age: 20 Month
  Sex: Female

DRUGS (2)
  1. LAMICTAL [Suspect]
     Dates: start: 20050101, end: 20050101
  2. KEPPRA [Suspect]
     Route: 048
     Dates: start: 20050101

REACTIONS (6)
  - CONVULSION [None]
  - GRIP STRENGTH DECREASED [None]
  - HYPOTONIA [None]
  - PYREXIA [None]
  - VIRAL INFECTION [None]
  - VOMITING [None]
